FAERS Safety Report 9226426 (Version 1)
Quarter: 2013Q2

REPORT INFORMATION
  Report Type: Spontaneous
  Country: JP (occurrence: JP)
  Receive Date: 20130411
  Receipt Date: 20130411
  Transmission Date: 20140414
  Serious: Yes (Other)
  Sender: FDA-Public Use
  Company Number: PHHY2013JP026609

PATIENT
  Sex: Female

DRUGS (1)
  1. FEMARA [Suspect]
     Route: 048

REACTIONS (4)
  - Nephrolithiasis [Unknown]
  - Myalgia [Unknown]
  - Arthralgia [Unknown]
  - Blood cholesterol increased [Unknown]
